FAERS Safety Report 22758559 (Version 4)
Quarter: 2024Q4

REPORT INFORMATION
  Report Type: Report from Study
  Country: US (occurrence: US)
  Receive Date: 20230728
  Receipt Date: 20241118
  Transmission Date: 20250115
  Serious: Yes (Hospitalization, Other)
  Sender: GENMAB
  Company Number: US-GENMAB-2023-01303

PATIENT
  Age: 35 Year
  Sex: Male

DRUGS (1)
  1. EPKINLY [Suspect]
     Active Substance: EPCORITAMAB-BYSP
     Indication: Diffuse large B-cell lymphoma
     Dosage: 48MG/0.8 ML
     Route: 058
     Dates: start: 20230616, end: 202309

REACTIONS (4)
  - Pain [Unknown]
  - Primary mediastinal large B-cell lymphoma [Unknown]
  - Product dose omission issue [Unknown]
  - Treatment delayed [Unknown]

NARRATIVE: CASE EVENT DATE: 20230713
